FAERS Safety Report 15474387 (Version 1)
Quarter: 2018Q4

REPORT INFORMATION
  Report Type: Spontaneous
  Country: TR (occurrence: TR)
  Receive Date: 20181008
  Receipt Date: 20181008
  Transmission Date: 20190205
  Serious: Yes (Hospitalization)
  Sender: FDA-Public Use
  Company Number: TR-BAYER-2018-184385

PATIENT
  Age: 29 Year
  Sex: Female

DRUGS (4)
  1. ENOXAPARIN [Concomitant]
     Active Substance: ENOXAPARIN
     Dosage: 2000 IU/0.2 ML
  2. ACETYLSALICYLIC ACID({=100 MG) [Suspect]
     Active Substance: ASPIRIN
     Indication: PLASMINOGEN ACTIVATOR INHIBITOR POLYMORPHISM
  3. CLINDAMYCIN. [Concomitant]
     Active Substance: CLINDAMYCIN
  4. ACETYLSALICYLIC ACID({=100 MG) [Suspect]
     Active Substance: ASPIRIN
     Indication: METHYLENETETRAHYDROFOLATE REDUCTASE GENE MUTATION
     Dosage: 100 MG, UNK

REACTIONS (6)
  - Premature delivery [Recovered/Resolved]
  - Labelled drug-drug interaction medication error [None]
  - Placenta praevia haemorrhage [Recovered/Resolved]
  - Exposure during pregnancy [None]
  - Off label use [None]
  - Product use in unapproved indication [None]
